FAERS Safety Report 11637767 (Version 1)
Quarter: 2015Q4

REPORT INFORMATION
  Report Type: Spontaneous
  Country: FR (occurrence: FR)
  Receive Date: 20151016
  Receipt Date: 20151016
  Transmission Date: 20160304
  Serious: Yes (Death, Other)
  Sender: FDA-Public Use
  Company Number: FR-ASTRAZENECA-2015SE98084

PATIENT
  Age: 30622 Day
  Sex: Male

DRUGS (7)
  1. CRESTOR [Suspect]
     Active Substance: ROSUVASTATIN CALCIUM
     Route: 048
     Dates: end: 20150831
  2. LASILIX [Suspect]
     Active Substance: FUROSEMIDE
     Route: 048
     Dates: end: 20150831
  3. XARELTO [Suspect]
     Active Substance: RIVAROXABAN
     Route: 048
     Dates: end: 20150831
  4. TEMERIT [Suspect]
     Active Substance: NEBIVOLOL
     Route: 048
     Dates: end: 20150831
  5. INSPRA [Suspect]
     Active Substance: EPLERENONE
     Route: 048
     Dates: end: 20150831
  6. HEMIGOXINE [Suspect]
     Active Substance: DIGOXIN
     Dosage: ?
     Route: 048
     Dates: end: 20150831
  7. TAREG [Suspect]
     Active Substance: VALSARTAN
     Route: 048
     Dates: end: 20150831

REACTIONS (6)
  - Acute kidney injury [Unknown]
  - Cardiopulmonary failure [Fatal]
  - Anaemia [Unknown]
  - Haematuria [Unknown]
  - Hemiplegia [Unknown]
  - Ischaemic stroke [Fatal]

NARRATIVE: CASE EVENT DATE: 20150831
